FAERS Safety Report 18473319 (Version 1)
Quarter: 2020Q4

REPORT INFORMATION
  Report Type: Spontaneous
  Country: US (occurrence: US)
  Receive Date: 20201106
  Receipt Date: 20201106
  Transmission Date: 20210114
  Serious: No
  Sender: FDA-Public Use
  Company Number: US-BAYER-2020-238705

PATIENT
  Sex: Female
  Weight: 136.05 kg

DRUGS (1)
  1. KYLEENA [Suspect]
     Active Substance: LEVONORGESTREL
     Dosage: 17.5?G PER DAY CONTINUOUSLY
     Route: 015

REACTIONS (1)
  - Liver disorder [None]
